FAERS Safety Report 19684728 (Version 1)
Quarter: 2021Q3

REPORT INFORMATION
  Report Type: Spontaneous
  Country: US (occurrence: US)
  Receive Date: 20210811
  Receipt Date: 20210811
  Transmission Date: 20211014
  Serious: No
  Sender: FDA-Public Use
  Company Number: None

PATIENT
  Age: 40 Year
  Sex: Female

DRUGS (1)
  1. HUMIRA [Suspect]
     Active Substance: ADALIMUMAB
     Indication: HIDRADENITIS
     Dates: start: 20201014

REACTIONS (3)
  - Drug ineffective [None]
  - Needle issue [None]
  - Device malfunction [None]

NARRATIVE: CASE EVENT DATE: 20210727
